FAERS Safety Report 9325221 (Version 1)
Quarter: 2013Q2

REPORT INFORMATION
  Report Type: Spontaneous
  Country: US (occurrence: US)
  Receive Date: 20130604
  Receipt Date: 20130604
  Transmission Date: 20140414
  Serious: Yes (Hospitalization)
  Sender: FDA-Public Use
  Company Number: US-AMGEN-USASP2013038568

PATIENT
  Age: 74 Year
  Sex: Female
  Weight: 40.82 kg

DRUGS (2)
  1. PROCRIT [Suspect]
     Indication: PRODUCT USED FOR UNKNOWN INDICATION
     Dosage: UNK
     Route: 058
  2. LOVENOX [Concomitant]
     Dosage: UNK

REACTIONS (3)
  - Malaise [Unknown]
  - Unevaluable event [Unknown]
  - Blood count abnormal [Unknown]
